FAERS Safety Report 6547811-4 (Version None)
Quarter: 2010Q1

REPORT INFORMATION
  Report Type: 
  Country: None (occurrence: None)
  Receive Date: 20100124
  Receipt Date: 20091019
  Transmission Date: 20100710
  Serious: No
  Sender: FDA-Public Use
  Company Number: US-ALEXION-A200900859

PATIENT
  Sex: Female

DRUGS (4)
  1. SOLIRIS [Suspect]
     Indication: PAROXYSMAL NOCTURNAL HAEMOGLOBINURIA
     Dosage: 600 MG, QW
     Route: 042
     Dates: start: 20091005
  2. SYNTHROID [Concomitant]
     Dosage: 88 UG, QD
     Route: 048
  3. BONIVA [Concomitant]
     Dosage: 150, MONTHLY
     Route: 048
  4. FOLIC ACID [Concomitant]
     Indication: PAROXYSMAL NOCTURNAL HAEMOGLOBINURIA
     Dosage: 5 MG, QID
     Route: 048

REACTIONS (1)
  - HEADACHE [None]
